FAERS Safety Report 5986043-5 (Version None)
Quarter: 2008Q4

REPORT INFORMATION
  Report Type: 
  Country: None (occurrence: None)
  Receive Date: 20081203
  Receipt Date: 20081203
  Transmission Date: 20090506
  Serious: Yes (Other)
  Sender: FDA-Public Use
  Company Number: None

PATIENT
  Age: 34 Year
  Sex: Female
  Weight: 74.8435 kg

DRUGS (1)
  1. BUPROPRION 300MG [Suspect]
     Indication: DEPRESSION
     Dosage: 1 PILL ONCE A DAY PO
     Route: 048
     Dates: start: 20070413, end: 20081104

REACTIONS (4)
  - CRYING [None]
  - DEPRESSION [None]
  - FEELING OF DESPAIR [None]
  - THERAPEUTIC RESPONSE UNEXPECTED WITH DRUG SUBSTITUTION [None]
